FAERS Safety Report 9542150 (Version 2)
Quarter: 2013Q4

REPORT INFORMATION
  Report Type: Spontaneous
  Country: JP (occurrence: JP)
  Receive Date: 20130923
  Receipt Date: 20131008
  Transmission Date: 20140711
  Serious: Yes (Other)
  Sender: FDA-Public Use
  Company Number: JP-JNJFOC-20130911934

PATIENT
  Sex: Female

DRUGS (1)
  1. DOXIL [Suspect]
     Indication: MALIGNANT PERITONEAL NEOPLASM
     Route: 042
     Dates: start: 201304

REACTIONS (2)
  - Ascites [Recovered/Resolved]
  - Off label use [Unknown]
